FAERS Safety Report 17583342 (Version 1)
Quarter: 2020Q1

REPORT INFORMATION
  Report Type: Spontaneous
  Country: GB (occurrence: GB)
  Receive Date: 20200326
  Receipt Date: 20200326
  Transmission Date: 20200409
  Serious: Yes (Disabling, Other)
  Sender: FDA-Public Use
  Company Number: GB-SUN PHARMACEUTICAL INDUSTRIES LTD-2020RR-241693

PATIENT
  Age: 41 Year
  Sex: Male
  Weight: 63 kg

DRUGS (1)
  1. CIPROFLOXACIN. [Suspect]
     Active Substance: CIPROFLOXACIN
     Indication: URINARY TRACT INFECTION
     Dosage: 2 DOSAGE FORMS, DAILY
     Route: 048
     Dates: start: 20200212, end: 20200214

REACTIONS (1)
  - Tendon disorder [Recovering/Resolving]

NARRATIVE: CASE EVENT DATE: 20200215
